FAERS Safety Report 8238860-9 (Version None)
Quarter: 2012Q1

REPORT INFORMATION
  Report Type: 
  Country: None (occurrence: None)
  Receive Date: 20120327
  Receipt Date: 20120319
  Transmission Date: 20120608
  Serious: Yes (Death, Hospitalization)
  Sender: FDA-Public Use
  Company Number: CA-ASTRAZENECA-2012SE18523

PATIENT
  Age: 85 Year
  Sex: Male

DRUGS (1)
  1. ZOLADEX [Suspect]
     Indication: PROSTATE CANCER
     Route: 058
     Dates: start: 20091218, end: 20120306

REACTIONS (3)
  - APHAGIA [None]
  - DEATH [None]
  - DEPRESSION [None]
